FAERS Safety Report 8086207-3 (Version None)
Quarter: 2012Q1

REPORT INFORMATION
  Report Type: 
  Country: None (occurrence: None)
  Receive Date: 20120128
  Receipt Date: 20110413
  Transmission Date: 20120608
  Serious: No
  Sender: FDA-Public Use
  Company Number: US-ABBOTT-11P-163-0719603-00

PATIENT
  Age: 48 Year
  Sex: Female
  Weight: 58.112 kg

DRUGS (5)
  1. ASPIRIN [Concomitant]
     Indication: PRODUCT USED FOR UNKNOWN INDICATION
  2. HUMIRA [Suspect]
     Indication: COLITIS ULCERATIVE
     Dates: start: 20110101
  3. METOPROLOL TARTRATE [Concomitant]
     Indication: HEART VALVE REPLACEMENT
  4. UNKNOWN MEDICATION [Concomitant]
     Indication: HORMONE LEVEL ABNORMAL
  5. LIALDA [Concomitant]
     Indication: COLITIS ULCERATIVE

REACTIONS (2)
  - COLITIS ULCERATIVE [None]
  - INJECTION SITE PAIN [None]
